FAERS Safety Report 15668607 (Version 2)
Quarter: 2019Q1

REPORT INFORMATION
  Report Type: Spontaneous
  Country: US (occurrence: US)
  Receive Date: 20181129
  Receipt Date: 20190222
  Transmission Date: 20190417
  Serious: No
  Sender: FDA-Public Use
  Company Number: US-TEVA-2018-US-979255

PATIENT
  Age: 76 Year
  Sex: Female

DRUGS (7)
  1. PENICILLIN [Concomitant]
     Active Substance: PENICILLIN
  2. CORTISONE [Concomitant]
     Active Substance: CORTISONE\HYDROCORTISONE
  3. CIPRO [Concomitant]
     Active Substance: CIPROFLOXACIN HYDROCHLORIDE
  4. CLONIDINE. [Suspect]
     Active Substance: CLONIDINE
     Dosage: .1 MILLIGRAM DAILY;
     Route: 065
  5. AMOXICILLIN. [Concomitant]
     Active Substance: AMOXICILLIN
  6. PREDNISONE. [Concomitant]
     Active Substance: PREDNISONE
  7. PYE/LIDOCAINE [Concomitant]
     Route: 042

REACTIONS (5)
  - Swelling [Recovered/Resolved]
  - Rash [Recovered/Resolved]
  - Product adhesion issue [Unknown]
  - Erythema [Recovered/Resolved]
  - Musculoskeletal pain [Recovered/Resolved]

NARRATIVE: CASE EVENT DATE: 20181113
